FAERS Safety Report 9332109 (Version 1)
Quarter: 2013Q2

REPORT INFORMATION
  Report Type: Spontaneous
  Country: US (occurrence: US)
  Receive Date: 20130606
  Receipt Date: 20130606
  Transmission Date: 20140414
  Serious: Yes (Other)
  Sender: FDA-Public Use
  Company Number: US-JNJCP-30000163672

PATIENT
  Sex: Male
  Weight: 79 kg

DRUGS (11)
  1. NEUTROGENA ADVANCED SOLUTION COMPLETE ACNE THERAPY SYSTEM [Suspect]
     Indication: ACNE
     Dosage: SIZE OF A QUARTER, THREE TIMES
     Route: 061
     Dates: start: 20130428, end: 20130430
  2. ACETAMINOPHEN [Concomitant]
     Indication: MULTIPLE SCLEROSIS
     Dosage: 1000 MG, SINCE THREE YEARS
  3. BACFLAN [Concomitant]
     Indication: MULTIPLE SCLEROSIS
     Dosage: 60 MG, SINCE THREE YEARS
  4. CALCIUM [Concomitant]
     Indication: ROUTINE HEALTH MAINTENANCE
     Dosage: ONE, AT LEAST THREE YEARS
  5. FISH OIL [Concomitant]
     Indication: ROUTINE HEALTH MAINTENANCE
     Dosage: ONE AT LEAST THREE YEARS
  6. MAGNESIUM [Concomitant]
     Indication: ROUTINE HEALTH MAINTENANCE
     Dosage: ONE, AT LEAST THREE YEARS
  7. MULT. VITAMIN [Concomitant]
     Indication: ROUTINE HEALTH MAINTENANCE
     Dosage: ONE AT LEAST THREE YEARS
  8. TRAMADOL [Concomitant]
     Indication: MULTIPLE SCLEROSIS
     Dosage: 200 MG, SINCE THREE YEARS
  9. NEUTROGENA ADVANCED SOLUTIONS COMPLETE ACNE THERAPY SYSTEM [Suspect]
     Indication: ACNE
     Dosage: SIZE OF A DIME, ONCE
     Route: 061
     Dates: start: 20130429, end: 20130430
  10. NEUTROGENA ADVANCED SOLUTIONS COMPLETE ACNE THERAPY SYSTEM [Suspect]
     Indication: ACNE
     Dosage: SIZE OF A NICKEL, TWICE
     Route: 061
     Dates: start: 20130429, end: 20130430
  11. NEUTROGENA OIL-FREE ACNE STRESS CONTROL POWER-GEL CLEANSER [Suspect]
     Indication: ACNE
     Dosage: SIZE OF A QUARTER, ONCE DAILY
     Route: 061
     Dates: start: 20130428

REACTIONS (3)
  - Back pain [Recovered/Resolved]
  - Dyspnoea [Recovered/Resolved]
  - Application site rash [Recovered/Resolved]
